FAERS Safety Report 10017999 (Version 4)
Quarter: 2014Q3

REPORT INFORMATION
  Report Type: Spontaneous
  Country: US (occurrence: US)
  Receive Date: 20140318
  Receipt Date: 20140924
  Transmission Date: 20150326
  Serious: Yes (Hospitalization, Other)
  Sender: FDA-Public Use
  Company Number: US-BAYER-2014-039629

PATIENT
  Age: 36 Year
  Sex: Female
  Weight: 79.37 kg

DRUGS (1)
  1. MIRENA [Suspect]
     Active Substance: LEVONORGESTREL
     Indication: CONTRACEPTION
     Dosage: 20 MCG/24HR, CONT
     Route: 015
     Dates: start: 200909, end: 20110923

REACTIONS (16)
  - Emotional distress [Not Recovered/Not Resolved]
  - Uterine scar [None]
  - Dysmenorrhoea [Not Recovered/Not Resolved]
  - Genital haemorrhage [None]
  - Headache [Not Recovered/Not Resolved]
  - Infertility female [None]
  - Pain [Not Recovered/Not Resolved]
  - Menstruation irregular [Not Recovered/Not Resolved]
  - Embedded device [Not Recovered/Not Resolved]
  - Anxiety [Not Recovered/Not Resolved]
  - Uterine injury [Not Recovered/Not Resolved]
  - Mental disorder [Not Recovered/Not Resolved]
  - Injury [Not Recovered/Not Resolved]
  - Vision blurred [None]
  - Device defective [None]
  - Dizziness [Not Recovered/Not Resolved]

NARRATIVE: CASE EVENT DATE: 2009
